FAERS Safety Report 13370121 (Version 1)
Quarter: 2017Q1

REPORT INFORMATION
  Report Type: Spontaneous
  Country: RU (occurrence: RU)
  Receive Date: 20170324
  Receipt Date: 20170324
  Transmission Date: 20170429
  Serious: Yes (Other)
  Sender: FDA-Public Use
  Company Number: RU-ASTRAZENECA-2017SE30070

PATIENT
  Age: 63 Year
  Sex: Male

DRUGS (4)
  1. BETALOC [Concomitant]
     Active Substance: METOPROLOL TARTRATE
  2. ATORIS [Concomitant]
     Active Substance: ATORVASTATIN CALCIUM
  3. BRILINTA [Suspect]
     Active Substance: TICAGRELOR
     Indication: MYOCARDIAL INFARCTION
     Route: 048
     Dates: start: 201610
  4. PERINEVA [Concomitant]
     Active Substance: PERINDOPRIL ERBUMINE

REACTIONS (2)
  - Chest pain [Unknown]
  - Dyspnoea [Unknown]
